FAERS Safety Report 21773086 (Version 2)
Quarter: 2023Q1

REPORT INFORMATION
  Report Type: Report from Study
  Country: US (occurrence: US)
  Receive Date: 20221223
  Receipt Date: 20230116
  Transmission Date: 20230418
  Serious: Yes (Death, Hospitalization, Other)
  Sender: FDA-Public Use
  Company Number: US-BoehringerIngelheim-2022-BI-175123

PATIENT
  Age: 82 Year
  Sex: Female
  Weight: 85.1 kg

DRUGS (1)
  1. OFEV [Suspect]
     Active Substance: NINTEDANIB
     Indication: Idiopathic pulmonary fibrosis
     Route: 048
     Dates: start: 20220504, end: 20220907

REACTIONS (10)
  - Cardiac failure congestive [Fatal]
  - Abdominal pain upper [Fatal]
  - Cardiac disorder [Fatal]
  - Hypervolaemia [Fatal]
  - Faeces soft [Fatal]
  - Abdominal pain upper [Fatal]
  - Muscle spasms [Fatal]
  - Hypotension [Fatal]
  - Dehydration [Fatal]
  - Cor pulmonale [Fatal]

NARRATIVE: CASE EVENT DATE: 20220907
